FAERS Safety Report 8018019-0 (Version None)
Quarter: 2012Q1

REPORT INFORMATION
  Report Type: 
  Country: None (occurrence: None)
  Receive Date: 20120103
  Receipt Date: 20111228
  Transmission Date: 20120608
  Serious: Yes (Other)
  Sender: FDA-Public Use
  Company Number: BR-JNJFOC-20111010597

PATIENT
  Age: 66 Year
  Sex: Female
  Weight: 58 kg

DRUGS (6)
  1. DICLOFENAC [Concomitant]
     Indication: ANTIINFLAMMATORY THERAPY
     Route: 065
  2. REMICADE [Suspect]
     Indication: RHEUMATOID ARTHRITIS
     Route: 042
     Dates: start: 20061206
  3. ALENDRONATE SODIUM [Concomitant]
     Indication: OSTEOPOROSIS
     Dosage: THE TREATMENT IS NOT CONTINUOUS
     Route: 065
  4. PREDNISONE TAB [Concomitant]
     Indication: ANTIINFLAMMATORY THERAPY
     Route: 065
  5. CELEBREX [Concomitant]
     Indication: ANTIINFLAMMATORY THERAPY
     Dosage: THE USE IS SPORADIC, IT IS NOT CONTINUOUS
     Route: 065
  6. ALL OTHER THERAPEUTICS [Concomitant]
     Indication: HYPERSENSITIVITY
     Dosage: THE USE IS NOT CONTINUOUS
     Route: 065

REACTIONS (1)
  - SJOGREN'S SYNDROME [None]
